FAERS Safety Report 7162552-0 (Version None)
Quarter: 2010Q4

REPORT INFORMATION
  Report Type: 
  Country: None (occurrence: None)
  Receive Date: 20101215
  Receipt Date: 20091119
  Transmission Date: 20110411
  Serious: Yes (Other)
  Sender: FDA-Public Use
  Company Number: US-PFIZER INC-2009278263

PATIENT
  Sex: Male
  Weight: 79.365 kg

DRUGS (4)
  1. LYRICA [Suspect]
     Indication: HERPES ZOSTER
     Dosage: 75 MG, 2X/DAY
     Dates: start: 20070301, end: 20080101
  2. LYRICA [Suspect]
     Indication: PAIN
  3. AMLODIPINE BESILATE [Concomitant]
     Indication: BLOOD PRESSURE
     Dosage: 5 MG, UNK
  4. CYMBALTA [Concomitant]
     Dosage: UNK

REACTIONS (4)
  - DRUG INEFFECTIVE [None]
  - GLAUCOMA [None]
  - MACULAR DEGENERATION [None]
  - SOMNOLENCE [None]
